FAERS Safety Report 9116697 (Version 1)
Quarter: 2013Q1

REPORT INFORMATION
  Report Type: Spontaneous
  Country: US (occurrence: US)
  Receive Date: 20130225
  Receipt Date: 20130225
  Transmission Date: 20140127
  Serious: Yes (Other)
  Sender: FDA-Public Use
  Company Number: US-PFIZER INC-2013065991

PATIENT
  Sex: Female

DRUGS (2)
  1. CELEBREX [Suspect]
     Indication: ANKYLOSING SPONDYLITIS
     Dosage: UNK
  2. CELEBREX [Suspect]
     Indication: ARTHRITIS

REACTIONS (5)
  - Sjogren^s syndrome [Unknown]
  - Mixed connective tissue disease [Unknown]
  - Local swelling [Unknown]
  - Nodule [Unknown]
  - Expired drug administered [Unknown]
